FAERS Safety Report 15794356 (Version 1)
Quarter: 2019Q1

REPORT INFORMATION
  Report Type: Report from Study
  Country: PH (occurrence: PH)
  Receive Date: 20190107
  Receipt Date: 20190107
  Transmission Date: 20190417
  Serious: Yes (Death, Hospitalization)
  Sender: FDA-Public Use
  Company Number: PHHY2019PH000864

PATIENT
  Age: 65 Year
  Sex: Female

DRUGS (1)
  1. GLIVEC [Suspect]
     Active Substance: IMATINIB MESYLATE
     Indication: CHRONIC MYELOID LEUKAEMIA
     Dosage: 100 MG, QID
     Route: 048
     Dates: start: 20180213, end: 20181204

REACTIONS (4)
  - Pyrexia [Fatal]
  - Oral pain [Unknown]
  - Pneumonia [Fatal]
  - Acute leukaemia [Fatal]

NARRATIVE: CASE EVENT DATE: 20181204
